FAERS Safety Report 5363078-7 (Version None)
Quarter: 2007Q2

REPORT INFORMATION
  Report Type: 
  Country: None (occurrence: None)
  Receive Date: 20070615
  Receipt Date: 20070607
  Transmission Date: 20071010
  Serious: Yes (Disabling)
  Sender: FDA-Public Use
  Company Number: US019833

PATIENT
  Age: 38 Year
  Sex: Female
  Weight: 81.8 kg

DRUGS (11)
  1. PROVIGIL [Suspect]
     Indication: ATTENTION DEFICIT/HYPERACTIVITY DISORDER
     Dosage: UNK ORAL
     Route: 048
  2. PROVIGIL [Suspect]
     Indication: ATTENTION DEFICIT/HYPERACTIVITY DISORDER
     Dosage: 50 MG QD ORAL
     Route: 048
     Dates: start: 20070330, end: 20070403
  3. BACLOFEN [Concomitant]
  4. GABAPENTIN [Concomitant]
  5. SYNTHROID [Concomitant]
  6. ZYRTEC [Concomitant]
  7. BENADRYL [Concomitant]
  8. ADVIL /00109201/ [Concomitant]
  9. AMOXICILLIN [Concomitant]
  10. GUAIFENESIN [Concomitant]
  11. SUDAFED /00076302/ [Concomitant]

REACTIONS (4)
  - DYSKINESIA [None]
  - IMPAIRED WORK ABILITY [None]
  - SPEECH DISORDER [None]
  - TIC [None]
